FAERS Safety Report 19708664 (Version 1)
Quarter: 2021Q3

REPORT INFORMATION
  Report Type: Spontaneous
  Country: DE (occurrence: DE)
  Receive Date: 20210817
  Receipt Date: 20210817
  Transmission Date: 20211014
  Serious: Yes (Hospitalization)
  Sender: FDA-Public Use
  Company Number: DE-TEVA-2021-DE-1941777

PATIENT
  Age: 63 Year
  Sex: Male

DRUGS (1)
  1. IBUPROFEN. [Suspect]
     Active Substance: IBUPROFEN
     Dosage: 1600 MILLIGRAM DAILY; 1?0?1?0
     Route: 065

REACTIONS (2)
  - Angina pectoris [Recovering/Resolving]
  - Electrocardiogram abnormal [Recovering/Resolving]
